FAERS Safety Report 9830740 (Version 1)
Quarter: 2014Q1

REPORT INFORMATION
  Report Type: Spontaneous
  Country: US (occurrence: US)
  Receive Date: 20140120
  Receipt Date: 20140120
  Transmission Date: 20141002
  Serious: No
  Sender: FDA-Public Use
  Company Number: US-B.I. PHARMACEUTICALS,INC./RIDGEFIELD-2014-BI-01162BP

PATIENT
  Age: 64 Year
  Sex: Male
  Weight: 118 kg

DRUGS (3)
  1. PRADAXA [Suspect]
     Indication: ATRIAL FIBRILLATION
     Dosage: 300 MG
     Route: 048
     Dates: start: 201011
  2. LISINOPRIL [Concomitant]
     Indication: HYPERTENSION
     Dosage: 40 MG
     Route: 048
  3. METOPROLOL [Concomitant]
     Indication: HEART RATE INCREASED
     Dosage: 50 MG
     Route: 048

REACTIONS (1)
  - Arthritis [Recovered/Resolved]
